FAERS Safety Report 25805856 (Version 3)
Quarter: 2025Q4

REPORT INFORMATION
  Report Type: Report from Study
  Country: CA (occurrence: CA)
  Receive Date: 20250916
  Receipt Date: 20251023
  Transmission Date: 20260117
  Serious: Yes (Other)
  Sender: ABBVIE
  Company Number: CA-ABBVIE-6457107

PATIENT
  Age: 17 Year
  Sex: Female

DRUGS (2)
  1. SKYRIZI [Suspect]
     Active Substance: RISANKIZUMAB-RZAA
     Indication: Colitis ulcerative
     Dosage: WEEK 4, FORM STRENGTH: 360MG/2.4ML?DOSE FORM SOLUTION FOR INJECTION IN CARTRIDGE
     Route: 058
     Dates: start: 20240424, end: 20250829
  2. SKYRIZI [Suspect]
     Active Substance: RISANKIZUMAB-RZAA
     Indication: Colitis ulcerative
     Route: 042

REACTIONS (4)
  - Colectomy [Unknown]
  - Postoperative wound infection [Unknown]
  - Colitis [Unknown]
  - Therapeutic product effect incomplete [Unknown]

NARRATIVE: CASE EVENT DATE: 20250901
